FAERS Safety Report 10228259 (Version 2)
Quarter: 2014Q3

REPORT INFORMATION
  Report Type: Spontaneous
  Country: US (occurrence: US)
  Receive Date: 20140610
  Receipt Date: 20140826
  Transmission Date: 20150326
  Serious: Yes (Hospitalization)
  Sender: FDA-Public Use
  Company Number: US-BAYER-2014-083690

PATIENT
  Age: 40 Year
  Sex: Female

DRUGS (1)
  1. YAZ [Suspect]
     Active Substance: DROSPIRENONE\ETHINYL ESTRADIOL
     Dosage: UNK
     Dates: start: 1999, end: 2000

REACTIONS (7)
  - Mental disorder [None]
  - Thrombosis [None]
  - Injury [None]
  - Emotional distress [None]
  - Pain [None]
  - Deep vein thrombosis [None]
  - General physical health deterioration [None]

NARRATIVE: CASE EVENT DATE: 200612
